FAERS Safety Report 8168002-X (Version None)
Quarter: 2012Q1

REPORT INFORMATION
  Report Type: 
  Country: None (occurrence: None)
  Receive Date: 20120103
  Receipt Date: 20111106
  Transmission Date: 20120608
  Serious: No
  Sender: FDA-Public Use
  Company Number: AE-2011-003131

PATIENT
  Age: 52 Year
  Sex: Female
  Weight: 81.6475 kg

DRUGS (4)
  1. INCIVEK [Suspect]
     Dosage: 2250 MG (750 MG,3 IN 1 D),ORAL
     Route: 048
     Dates: start: 20111028
  2. PEGINTERFERON (PEGINTERFERON ALFA-2A) [Concomitant]
  3. PEGINTERFERON ALFA-2A [Suspect]
  4. RIBAVIRIN (RIBAVRIN) [Concomitant]

REACTIONS (1)
  - RASH PRURITIC [None]
